FAERS Safety Report 16387220 (Version 1)
Quarter: 2019Q2

REPORT INFORMATION
  Report Type: Spontaneous
  Country: US (occurrence: US)
  Receive Date: 20190604
  Receipt Date: 20190604
  Transmission Date: 20190711
  Serious: No
  Sender: FDA-Public Use
  Company Number: US-AMGEN-USASP2019087133

PATIENT
  Sex: Female

DRUGS (9)
  1. METHOTREXATE. [Concomitant]
     Active Substance: METHOTREXATE
     Indication: PSORIATIC ARTHROPATHY
     Dosage: 2.5 MILLIGRAM EVERY TUESDAY
  2. SYNTHROID [Concomitant]
     Active Substance: LEVOTHYROXINE SODIUM
     Indication: THYROID DISORDER
     Dosage: 50 MICROGRAM, QD
  3. PROZAC [Concomitant]
     Active Substance: FLUOXETINE HYDROCHLORIDE
     Indication: DEPRESSION
     Dosage: 30 MILLIGRAM, QD
  4. ENBREL [Suspect]
     Active Substance: ETANERCEPT
     Indication: SPINAL PAIN
     Dosage: UNK
     Route: 065
     Dates: start: 2013
  5. FOLIC ACID. [Concomitant]
     Active Substance: FOLIC ACID
     Dosage: 3 MILLIGRAM, THURSDAY THROUGH MONDAY
  6. LIPITOR [Concomitant]
     Active Substance: ATORVASTATIN CALCIUM
     Indication: BLOOD CHOLESTEROL INCREASED
     Dosage: 30 MILLIGRAM, QD
  7. OMEPRAZOLE. [Concomitant]
     Active Substance: OMEPRAZOLE
     Indication: ABDOMINAL PAIN UPPER
     Dosage: 40 MILLIGRAM, QD
  8. CELEBREX [Concomitant]
     Active Substance: CELECOXIB
     Indication: PSORIATIC ARTHROPATHY
     Dosage: 200 MILLIGRAM, BID (400 MG)
  9. LEUCOVORIN CALCIUM. [Concomitant]
     Active Substance: LEUCOVORIN CALCIUM
     Dosage: 5 MILLIGRAM EVERY WEDNESDAY

REACTIONS (3)
  - Pain in extremity [Recovering/Resolving]
  - Drug ineffective [Unknown]
  - Spinal pain [Recovered/Resolved]
